FAERS Safety Report 15311611 (Version 1)
Quarter: 2018Q3

REPORT INFORMATION
  Report Type: Report from Study
  Country: US (occurrence: US)
  Receive Date: 20180823
  Receipt Date: 20180823
  Transmission Date: 20181010
  Serious: Yes (Other)
  Sender: FDA-Public Use
  Company Number: US-JAZZ-2018-US-011768

PATIENT
  Sex: Female

DRUGS (36)
  1. DIAZEPAM. [Concomitant]
     Active Substance: DIAZEPAM
  2. VITAMIN D2 [Concomitant]
     Active Substance: ERGOCALCIFEROL
  3. ALPRAZOLAM. [Concomitant]
     Active Substance: ALPRAZOLAM
  4. XYREM [Suspect]
     Active Substance: SODIUM OXYBATE
     Dosage: DOSE ADJUSTMENT
     Route: 048
     Dates: start: 200804, end: 201007
  5. OXYCODONE HYDROCHLORIDE. [Concomitant]
     Active Substance: OXYCODONE HYDROCHLORIDE
  6. LEVOCARNITINE. [Concomitant]
     Active Substance: LEVOCARNITINE
  7. TOCOPHEROL [Concomitant]
     Active Substance: TOCOPHEROL
  8. METHADONE HCL [Concomitant]
     Active Substance: METHADONE HYDROCHLORIDE
  9. RIBOFLAVIN [Concomitant]
     Active Substance: RIBOFLAVIN
  10. SPIRONOLACTONE. [Concomitant]
     Active Substance: SPIRONOLACTONE
  11. ALPHA LIPOIC ACID [Concomitant]
     Active Substance: .ALPHA.-LIPOIC ACID
  12. ENTOCORT [Concomitant]
     Active Substance: BUDESONIDE
  13. TIZANIDINE. [Concomitant]
     Active Substance: TIZANIDINE
  14. ALBUTEROL SULFATE. [Concomitant]
     Active Substance: ALBUTEROL SULFATE
  15. OMEPRAZOLE. [Concomitant]
     Active Substance: OMEPRAZOLE
  16. ZENPEP [Concomitant]
     Active Substance: PANCRELIPASE AMYLASE\PANCRELIPASE LIPASE\PANCRELIPASE PROTEASE
  17. DIFLUCAN [Concomitant]
     Active Substance: FLUCONAZOLE
  18. ACICLOVIR [Concomitant]
     Active Substance: ACYCLOVIR
  19. ATENOLOL. [Concomitant]
     Active Substance: ATENOLOL
  20. LIALDA [Concomitant]
     Active Substance: MESALAMINE
  21. OXYCODONE [Concomitant]
     Active Substance: OXYCODONE
  22. XYREM [Suspect]
     Active Substance: SODIUM OXYBATE
     Dosage: 4.5 G, BID
     Route: 048
     Dates: start: 201007
  23. OXYCONTIN [Concomitant]
     Active Substance: OXYCODONE HYDROCHLORIDE
  24. ONDANSETRON [Concomitant]
     Active Substance: ONDANSETRON
  25. L?CYSTEINE HCL [Concomitant]
  26. ADDERALL [Concomitant]
     Active Substance: AMPHETAMINE ASPARTATE\AMPHETAMINE SULFATE\DEXTROAMPHETAMINE SACCHARATE\DEXTROAMPHETAMINE SULFATE
  27. LORATADINE. [Concomitant]
     Active Substance: LORATADINE
  28. VITAMIN B?6 [Concomitant]
     Active Substance: PYRIDOXINE
  29. VITAMIN D3 [Concomitant]
     Active Substance: CHOLECALCIFEROL
  30. ZITHROMAX [Concomitant]
     Active Substance: AZITHROMYCIN DIHYDRATE
  31. RESVERATROL [Concomitant]
     Active Substance: DIETARY SUPPLEMENT\RESVERATROL
  32. XYREM [Suspect]
     Active Substance: SODIUM OXYBATE
     Indication: NARCOLEPSY
     Dosage: 2.25 G, BID
     Route: 048
     Dates: start: 200803, end: 200804
  33. AMOXICILLIN/CLAVULANIC ACID [Concomitant]
     Active Substance: AMOXICILLIN\CLAVULANIC ACID
  34. RECLAST [Concomitant]
     Active Substance: ZOLEDRONIC ACID
  35. BUDESONIDE. [Concomitant]
     Active Substance: BUDESONIDE
  36. VIOKACE [Concomitant]
     Active Substance: PANCRELIPASE AMYLASE\PANCRELIPASE LIPASE\PANCRELIPASE PROTEASE

REACTIONS (1)
  - Mitochondrial cytopathy [Unknown]
